FAERS Safety Report 24307598 (Version 1)
Quarter: 2024Q3

REPORT INFORMATION
  Report Type: Report from Study
  Country: NL (occurrence: NL)
  Receive Date: 20240911
  Receipt Date: 20240911
  Transmission Date: 20241016
  Serious: Yes (Hospitalization)
  Sender: VERITY PHARMACEUTICALS
  Company Number: NL-VER-202400058

PATIENT
  Sex: Male

DRUGS (3)
  1. TRIPTORELIN PAMOATE [Suspect]
     Active Substance: TRIPTORELIN PAMOATE
     Indication: Prostate cancer
     Dosage: 11.25 MILLIGRAM(S), IN 3 MONTH, SUSPENSION FOR INJECTION
     Route: 030
     Dates: start: 20200302
  2. TRIPTORELIN PAMOATE [Suspect]
     Active Substance: TRIPTORELIN PAMOATE
     Indication: Prostate cancer
     Dosage: 11.25 MILLIGRAM(S), IN 3 MONTH, SUSPENSION FOR INJECTION
     Route: 030
     Dates: start: 20240605
  3. TRIPTORELIN PAMOATE [Suspect]
     Active Substance: TRIPTORELIN PAMOATE
     Indication: Prostate cancer
     Dosage: 11.25 MILLIGRAM(S), IN 3 MONTH, SUSPENSION FOR INJECTION
     Route: 030
     Dates: start: 20240814

REACTIONS (1)
  - Procedural complication [Unknown]
